FAERS Safety Report 26170353 (Version 1)
Quarter: 2025Q4

REPORT INFORMATION
  Report Type: Spontaneous
  Country: GB (occurrence: GB)
  Receive Date: 20251217
  Receipt Date: 20251217
  Transmission Date: 20260117
  Serious: Yes (Other)
  Sender: MYLAN
  Company Number: GB-MYLANLABS-2024M1056217

PATIENT
  Age: 47 Year
  Sex: Female

DRUGS (10)
  1. CLOZARIL [Suspect]
     Active Substance: CLOZAPINE
     Indication: Schizophrenia
     Dosage: UNK
     Route: 061
  2. CLOZARIL [Suspect]
     Active Substance: CLOZAPINE
     Dosage: UNK
     Route: 061
  3. HALOPERIDOL [Concomitant]
     Active Substance: HALOPERIDOL
     Dosage: 1.5 MILLIGRAM, BID (BD)
  4. QUETIAPINE [Concomitant]
     Active Substance: QUETIAPINE
     Dosage: 800 MILLIGRAM, PM (ON)
     Dates: start: 202505, end: 202509
  5. LURASIDONE [Concomitant]
     Active Substance: LURASIDONE
     Dosage: UNK
  6. ZUCLOPENTHIXOL [Concomitant]
     Active Substance: ZUCLOPENTHIXOL
     Dosage: UNK
  7. ARIPIPRAZOLE [Concomitant]
     Active Substance: ARIPIPRAZOLE
     Dosage: UNK
  8. OLANZAPINE [Concomitant]
     Active Substance: OLANZAPINE
     Dosage: UNK
  9. RISPERIDONE [Concomitant]
     Active Substance: RISPERIDONE
     Dosage: UNK
  10. AMISULPRIDE [Concomitant]
     Active Substance: AMISULPRIDE
     Dosage: UNK

REACTIONS (9)
  - Lower respiratory tract infection [Unknown]
  - Neutropenia [Recovered/Resolved]
  - Hallucination, auditory [Unknown]
  - Blood pressure decreased [Unknown]
  - White blood cell count decreased [Recovered/Resolved]
  - Withdrawal syndrome [Unknown]
  - Eosinophil count decreased [Unknown]
  - COVID-19 [Unknown]
  - Off label use [Unknown]

NARRATIVE: CASE EVENT DATE: 20240522
